FAERS Safety Report 6031014-6 (Version None)
Quarter: 2009Q1

REPORT INFORMATION
  Report Type: 
  Country: None (occurrence: None)
  Receive Date: 20090108
  Receipt Date: 20081229
  Transmission Date: 20090719
  Serious: Yes (Hospitalization)
  Sender: FDA-Public Use
  Company Number: US-CELGENEUS-163-21880-08121747

PATIENT
  Sex: Male
  Weight: 106.5 kg

DRUGS (4)
  1. REVLIMID [Suspect]
     Route: 048
  2. RITUXIMAB [Suspect]
     Route: 050
  3. ALLOPURINOL [Concomitant]
     Indication: DRUG USE FOR UNKNOWN INDICATION
     Route: 048
  4. FLUCONAZOLE [Concomitant]
     Indication: DRUG USE FOR UNKNOWN INDICATION
     Route: 048

REACTIONS (3)
  - BLOOD BILIRUBIN INCREASED [None]
  - PYREXIA [None]
  - TUMOUR LYSIS SYNDROME [None]
